FAERS Safety Report 16400213 (Version 1)
Quarter: 2019Q2

REPORT INFORMATION
  Report Type: Spontaneous
  Country: US (occurrence: US)
  Receive Date: 20190606
  Receipt Date: 20190606
  Transmission Date: 20190711
  Serious: No
  Sender: FDA-Public Use
  Company Number: US-ALLERGAN-1823981US

PATIENT
  Sex: Female
  Weight: 53.52 kg

DRUGS (1)
  1. KYBELLA [Suspect]
     Active Substance: DEOXYCHOLIC ACID
     Indication: PRODUCT USED FOR UNKNOWN INDICATION
     Dosage: 3.2 ML, SINGLE
     Route: 058
     Dates: start: 20180430, end: 20180430

REACTIONS (3)
  - Neuralgia [Unknown]
  - Feeling abnormal [Unknown]
  - Facial asymmetry [Unknown]
